FAERS Safety Report 16314762 (Version 3)
Quarter: 2019Q2

REPORT INFORMATION
  Report Type: Spontaneous
  Country: US (occurrence: US)
  Receive Date: 20190515
  Receipt Date: 20190625
  Transmission Date: 20190711
  Serious: Yes (Hospitalization)
  Sender: FDA-Public Use
  Company Number: US-PFIZER INC-2019198227

PATIENT
  Age: 69 Year
  Sex: Female
  Weight: 60.32 kg

DRUGS (7)
  1. LATUDA [Concomitant]
     Active Substance: LURASIDONE HYDROCHLORIDE
     Dosage: 40 MG, 1X/DAY
     Dates: start: 2014
  2. NAVANE [Suspect]
     Active Substance: THIOTHIXENE
     Dosage: 0.5 MG, UNK
  3. NAVANE [Suspect]
     Active Substance: THIOTHIXENE
     Indication: ANXIETY
     Dosage: 2 MG LIQUID (DAILY FOR 10 DAYS)
     Route: 048
     Dates: start: 1986
  4. NAVANE [Suspect]
     Active Substance: THIOTHIXENE
     Dosage: 1 MG, ALTERNATE DAY
  5. GABAPENTIN. [Concomitant]
     Active Substance: GABAPENTIN
     Dosage: 600 MG, 4X/DAY
     Dates: start: 2004
  6. NAVANE [Suspect]
     Active Substance: THIOTHIXENE
     Dosage: 4 MG, 1X/DAY
     Dates: start: 1989
  7. CELEXA [CELECOXIB] [Concomitant]
     Active Substance: CELECOXIB
     Dosage: 5 MG, 1X/DAY
     Dates: start: 2004

REACTIONS (10)
  - Depression [Recovered/Resolved]
  - Gait disturbance [Not Recovered/Not Resolved]
  - Disorientation [Not Recovered/Not Resolved]
  - Dizziness [Unknown]
  - Dyskinesia [Unknown]
  - Coordination abnormal [Unknown]
  - Intentional product misuse [Not Recovered/Not Resolved]
  - Asthenia [Unknown]
  - Withdrawal syndrome [Recovered/Resolved with Sequelae]
  - Confusional state [Unknown]

NARRATIVE: CASE EVENT DATE: 201203
